FAERS Safety Report 7412461-4 (Version None)
Quarter: 2011Q2

REPORT INFORMATION
  Report Type: 
  Country: None (occurrence: None)
  Receive Date: 20110405
  Receipt Date: 20110317
  Transmission Date: 20111010
  Serious: Yes (Death)
  Sender: FDA-Public Use
  Company Number: 2011P1005294

PATIENT
  Age: 21 Year
  Sex: Male

DRUGS (5)
  1. ACETAMINOPHEN [Suspect]
     Dosage: ; X1; PO
     Route: 048
  2. CITALOPRAM (NO PREF. NAME) [Suspect]
     Dosage: ; X1; PO
     Route: 048
  3. BENZODIAZEPINE (S) (NO PREF. NAME) [Suspect]
     Dosage: ; X1; PO
     Route: 048
  4. AMLODIPINE (NO PREF. NAME) [Suspect]
     Dosage: ; X1; PO
     Route: 048
  5. METOPROLOL (NO PREF. NAME) [Suspect]
     Dosage: ; PO
     Route: 048

REACTIONS (10)
  - ELECTROCARDIOGRAM PR PROLONGATION [None]
  - BRAIN OEDEMA [None]
  - HEART RATE [None]
  - ACUTE RESPIRATORY DISTRESS SYNDROME [None]
  - ISCHAEMIC HEPATITIS [None]
  - TOXICITY TO VARIOUS AGENTS [None]
  - ARRHYTHMIA [None]
  - HEART RATE DECREASED [None]
  - COMPLETED SUICIDE [None]
  - CARDIAC ARREST [None]
